FAERS Safety Report 12596653 (Version 2)
Quarter: 2016Q3

REPORT INFORMATION
  Report Type: Spontaneous
  Country: US (occurrence: US)
  Receive Date: 20160726
  Receipt Date: 20160909
  Transmission Date: 20161109
  Serious: Yes (Death)
  Sender: FDA-Public Use
  Company Number: US-BAUSCH-BL-2016-017688

PATIENT
  Age: 71 Year
  Sex: Male
  Weight: 90.35 kg

DRUGS (3)
  1. XIFAXAN [Suspect]
     Active Substance: RIFAXIMIN
     Indication: HEPATIC CIRRHOSIS
  2. XIFAXAN [Suspect]
     Active Substance: RIFAXIMIN
     Indication: CHRONIC HEPATIC FAILURE
     Route: 048
     Dates: start: 201510, end: 20160718
  3. LIPITOR [Concomitant]
     Active Substance: ATORVASTATIN CALCIUM
     Indication: PRODUCT USED FOR UNKNOWN INDICATION

REACTIONS (3)
  - Ammonia abnormal [Unknown]
  - Pulmonary fibrosis [Fatal]
  - Confusional state [Unknown]

NARRATIVE: CASE EVENT DATE: 201607
